FAERS Safety Report 8513815-5 (Version None)
Quarter: 2012Q2

REPORT INFORMATION
  Report Type: 
  Country: None (occurrence: None)
  Receive Date: 20120406
  Receipt Date: 20100224
  Transmission Date: 20120825
  Serious: Yes (Hospitalization)
  Sender: FDA-Public Use
  Company Number: PHHY2009US54412

PATIENT
  Sex: Female

DRUGS (13)
  1. ADVAIR HFA [Concomitant]
  2. ANALGESICS (NO INGREDIENTS/SUBSTANCES) [Concomitant]
  3. MONTELUKAST [Concomitant]
  4. UNSPECIFIED MEDICATION FOR BIPOLAR [Concomitant]
  5. ALBUTEROL [Concomitant]
  6. DIAZEPAM [Concomitant]
  7. KEPPRA [Concomitant]
  8. PROTONIX [Concomitant]
  9. PERCOCET [Concomitant]
  10. FENTANYL [Concomitant]
  11. SEROQUEL [Concomitant]
  12. TASIGNA [Suspect]
     Indication: CHRONIC MYELOID LEUKAEMIA
     Dosage: 400 MG, BID, ORAL; 400 MG, BID
     Route: 048
     Dates: start: 20090412
  13. LEXAPRO [Concomitant]

REACTIONS (4)
  - PYREXIA [None]
  - PNEUMONIA [None]
  - DIABETES MELLITUS [None]
  - RASH [None]
